FAERS Safety Report 5389152-7 (Version None)
Quarter: 2007Q3

REPORT INFORMATION
  Report Type: 
  Country: None (occurrence: None)
  Receive Date: 20070713
  Receipt Date: 20070713
  Transmission Date: 20080115
  Serious: Yes (Hospitalization)
  Sender: FDA-Public Use
  Company Number: None

PATIENT
  Age: 47 Year
  Sex: Male

DRUGS (2)
  1. AMOXICILLIN + CLAVULANATE POTASSIUM [Suspect]
     Indication: DIABETIC FOOT
     Dosage: 875MG BID PO
     Route: 048
     Dates: start: 20070607, end: 20070609
  2. PIPERACILLIN AND TAZOBACTAM [Suspect]
     Dosage: 3.375GM QID IV
     Route: 042
     Dates: start: 20070603, end: 20070607

REACTIONS (5)
  - NAUSEA [None]
  - NEPHRITIS INTERSTITIAL [None]
  - RENAL FAILURE ACUTE [None]
  - RENAL TUBULAR NECROSIS [None]
  - VOMITING [None]
